FAERS Safety Report 24618397 (Version 1)
Quarter: 2024Q4

REPORT INFORMATION
  Report Type: Spontaneous
  Country: US (occurrence: None)
  Receive Date: 20241113
  Receipt Date: 20241113
  Transmission Date: 20250115
  Serious: Yes (Hospitalization)
  Sender: Public
  Company Number: None

PATIENT
  Age: 58 Year
  Sex: Male
  Weight: 95 kg

DRUGS (3)
  1. INDOMETHACIN [Suspect]
     Active Substance: INDOMETHACIN
     Indication: Pain
     Dosage: FREQUENCY : 3 TIMES A DAY;?
     Route: 048
     Dates: start: 20240819, end: 20240822
  2. AMOXICILLIN\CLAVULANATE POTASSIUM [Suspect]
     Active Substance: AMOXICILLIN\CLAVULANATE POTASSIUM
     Dosage: 1.00 UNK - UNKNOW  TWICE  DAY ORAL
     Route: 048
     Dates: start: 20240819, end: 20240822
  3. COLCHICINE [Suspect]
     Active Substance: COLCHICINE

REACTIONS (3)
  - Swelling [None]
  - Pruritus [None]
  - Infection [None]

NARRATIVE: CASE EVENT DATE: 20240822
